FAERS Safety Report 11428981 (Version 1)
Quarter: 2015Q3

REPORT INFORMATION
  Report Type: Spontaneous
  Country: US (occurrence: None)
  Receive Date: 20150827
  Receipt Date: 20150827
  Transmission Date: 20151125
  Serious: Yes (Life-Threatening, Hospitalization, Other)
  Sender: FDA-Public Use
  Company Number: None

PATIENT
  Age: 44 Year
  Sex: Female
  Weight: 99.34 kg

DRUGS (8)
  1. PEPCID [Concomitant]
     Active Substance: FAMOTIDINE
  2. MAALOX ANTACID [Concomitant]
     Active Substance: ALUMINUM HYDROXIDE\DIMETHICONE\MAGNESIUM HYDROXIDE
  3. LEVAQUIN [Suspect]
     Active Substance: LEVOFLOXACIN
     Indication: KIDNEY INFECTION
     Dosage: 5 PILLS ONCE DAILY
     Route: 048
     Dates: start: 20150817, end: 20150817
  4. CARAFATE [Concomitant]
     Active Substance: SUCRALFATE
  5. LEVAQUIN [Suspect]
     Active Substance: LEVOFLOXACIN
     Indication: URINARY TRACT INFECTION
     Dosage: 5 PILLS ONCE DAILY
     Route: 048
     Dates: start: 20150817, end: 20150817
  6. INSULIN R [Concomitant]
  7. LEVAQUIN [Suspect]
     Active Substance: LEVOFLOXACIN
     Indication: GASTRITIS
     Dosage: 5 PILLS ONCE DAILY
     Route: 048
     Dates: start: 20150817, end: 20150817
  8. LEVEMIR [Concomitant]
     Active Substance: INSULIN DETEMIR

REACTIONS (5)
  - Tendonitis [None]
  - Anaphylactic reaction [None]
  - Muscle contracture [None]
  - Bursitis [None]
  - Muscle spasms [None]

NARRATIVE: CASE EVENT DATE: 20150817
